FAERS Safety Report 26212374 (Version 1)
Quarter: 2025Q4

REPORT INFORMATION
  Report Type: Spontaneous
  Country: US (occurrence: None)
  Receive Date: 20251230
  Receipt Date: 20251230
  Transmission Date: 20260118
  Serious: Yes (Hospitalization)
  Sender: SYNDAX
  Company Number: US-SYNDAX PHARMACEUTICALS, INC.-2025US001033

PATIENT
  Sex: Female
  Weight: 49.093 kg

DRUGS (1)
  1. REVUFORJ [Suspect]
     Active Substance: REVUMENIB CITRATE
     Indication: Acute leukaemia
     Dosage: 110 MILLIGRAM, BID
     Route: 061

REACTIONS (1)
  - Disease complication [Unknown]
